FAERS Safety Report 11893462 (Version 2)
Quarter: 2016Q1

REPORT INFORMATION
  Report Type: Spontaneous
  Country: None (occurrence: GB)
  Receive Date: 20160106
  Receipt Date: 20160119
  Transmission Date: 20160526
  Serious: Yes (Other)
  Sender: FDA-Public Use
  Company Number: GB-MEDAC PHARMA, INC.-1046216

PATIENT
  Age: 67 Year
  Sex: Male

DRUGS (1)
  1. METOJECT PEN [Suspect]
     Active Substance: METHOTREXATE
     Route: 058

REACTIONS (2)
  - Blindness unilateral [Not Recovered/Not Resolved]
  - Food interaction [Not Recovered/Not Resolved]

NARRATIVE: CASE EVENT DATE: 20151208
